FAERS Safety Report 6162725 (Version 8)
Quarter: 2013Q2

REPORT INFORMATION
  Report Type: Report from Study
  Country: GB (occurrence: GB)
  Receive Date: 20020328
  Receipt Date: 20130523
  Transmission Date: 20140414
  Serious: Yes (Death, Hospitalization, Other)
  Sender: FDA-Public Use
  Company Number: GB-GLAXOSMITHKLINE-B0263711A

PATIENT
  Sex: Female
  Weight: 14.2 kg

DRUGS (15)
  1. FLIXOTIDE [Suspect]
     Indication: ASTHMA
     Route: 055
     Dates: start: 19971229
  2. SERETIDE [Suspect]
     Indication: ASTHMA
     Route: 055
     Dates: start: 20001026
  3. BETNESOL [Suspect]
     Dosage: 2DROP TWICE PER DAY
     Route: 061
  4. PULMICORT [Suspect]
     Indication: ASTHMA
     Dosage: 800MCG PER DAY
     Route: 055
     Dates: start: 19971105, end: 20001026
  5. SALMETEROL [Concomitant]
     Indication: ASTHMA
     Dosage: 50MCG TWICE PER DAY
     Route: 055
  6. SODIUM CROMOGLYCATE [Concomitant]
     Indication: ASTHMA
     Dosage: 10MG FOUR TIMES PER DAY
     Dates: start: 19971010
  7. SLO-PHYLLIN [Concomitant]
     Dosage: 60MG TWICE PER DAY
     Dates: start: 19990111
  8. SINGULAIR [Concomitant]
     Dates: start: 19991111
  9. MONTELUKAST [Concomitant]
     Route: 065
     Dates: start: 19991111
  10. COMBIVENT [Concomitant]
     Dates: start: 19970508
  11. SALBUTAMOL [Concomitant]
     Dates: start: 19971105
  12. PREDNISOLON [Concomitant]
     Route: 048
     Dates: start: 19971107
  13. ANTIBIOTICS [Concomitant]
     Dates: start: 19971222, end: 19971229
  14. GALPSEUD [Concomitant]
     Dates: start: 19981201
  15. SEREVENT [Concomitant]

REACTIONS (36)
  - Adrenal insufficiency [Unknown]
  - Cardiac arrest [Unknown]
  - Brain oedema [Unknown]
  - Adrenal insufficiency [Fatal]
  - Adrenal suppression [Unknown]
  - Respiratory arrest [Unknown]
  - Visual impairment [Unknown]
  - Depressed level of consciousness [Unknown]
  - Adrenal insufficiency [Fatal]
  - Loss of consciousness [Unknown]
  - Convulsion [Unknown]
  - Intracranial pressure increased [Unknown]
  - Nerve compression [Fatal]
  - Neurological symptom [Unknown]
  - Unresponsive to stimuli [Unknown]
  - Oropharyngeal pain [Unknown]
  - Abdominal pain [Unknown]
  - Headache [Unknown]
  - Visual impairment [Unknown]
  - Irritability [Unknown]
  - Disorientation [Unknown]
  - Blood cortisol decreased [Unknown]
  - Pupillary reflex impaired [Unknown]
  - Tonsillitis [Unknown]
  - C-reactive protein increased [Unknown]
  - Coma scale abnormal [Unknown]
  - Hyponatraemia [Unknown]
  - Blood chloride decreased [Unknown]
  - Vomiting [Unknown]
  - Altered state of consciousness [Unknown]
  - Blood glucose decreased [Unknown]
  - Hypertrichosis [Unknown]
  - Underweight [Unknown]
  - White blood cell count increased [Unknown]
  - Renal impairment [Unknown]
  - Influenza like illness [Unknown]
